FAERS Safety Report 7704622-1 (Version None)
Quarter: 2011Q3

REPORT INFORMATION
  Report Type: 
  Country: None (occurrence: None)
  Receive Date: 20110823
  Receipt Date: 20110817
  Transmission Date: 20111222
  Serious: Yes (Hospitalization)
  Sender: FDA-Public Use
  Company Number: US-GLAXOSMITHKLINE-A0941876A

PATIENT
  Age: 11 Year
  Sex: Male
  Weight: 44.5 kg

DRUGS (18)
  1. METHOTREXATE [Suspect]
     Indication: T-CELL TYPE ACUTE LEUKAEMIA
     Route: 037
  2. OMEPRAZOLE [Concomitant]
  3. MERCAPTOPURINE [Suspect]
     Indication: T-CELL TYPE ACUTE LEUKAEMIA
     Dosage: 60MGM2 CYCLIC
     Route: 048
  4. SODIUM CHLORIDE [Concomitant]
  5. POTASSIUM [Concomitant]
  6. LEVETIRACETAM [Concomitant]
  7. NELARABINE [Suspect]
     Indication: T-CELL TYPE ACUTE LEUKAEMIA
     Dosage: 650MGM2 CYCLIC
     Route: 042
     Dates: start: 20110802
  8. CYTARABINE [Suspect]
     Indication: T-CELL TYPE ACUTE LEUKAEMIA
     Dosage: 75MGM2 CYCLIC
     Route: 042
  9. RADIATION [Suspect]
     Indication: T-CELL TYPE ACUTE LEUKAEMIA
     Route: 061
  10. CLOTRIMAZOLE [Concomitant]
  11. MIDAZOLAM HCL [Concomitant]
  12. CYCLOPHOSPHAMIDE [Suspect]
     Indication: T-CELL TYPE ACUTE LEUKAEMIA
     Dosage: 1000MGM2 CYCLIC
     Route: 042
  13. VINCRISTINE [Suspect]
     Indication: T-CELL TYPE ACUTE LEUKAEMIA
     Dosage: 1.5MGM2 CYCLIC
     Route: 042
  14. LABETALOL HCL [Concomitant]
  15. ERGOCALCIFEROL [Concomitant]
  16. AMLODIPINE [Concomitant]
  17. PEG-ASPARAGINASE [Suspect]
     Indication: T-CELL TYPE ACUTE LEUKAEMIA
     Route: 030
  18. TRIMETHOPRIM [Concomitant]

REACTIONS (1)
  - MYOSITIS [None]
